FAERS Safety Report 21488196 (Version 1)
Quarter: 2022Q4

REPORT INFORMATION
  Report Type: Spontaneous
  Country: US (occurrence: None)
  Receive Date: 20221020
  Receipt Date: 20221020
  Transmission Date: 20230113
  Serious: Yes (Hospitalization)
  Sender: FDA-Public Use
  Company Number: None

PATIENT
  Age: 90 Year
  Sex: Female
  Weight: 61.51 kg

DRUGS (31)
  1. PROMACTA [Suspect]
     Active Substance: ELTROMBOPAG OLAMINE
     Indication: Endocrine neoplasm malignant
     Dosage: FREQUENCY : EVERY OTHER DAY;?
     Route: 048
  2. PROMACTA [Suspect]
     Active Substance: ELTROMBOPAG OLAMINE
     Indication: Pancreatic carcinoma
  3. ALPRAZOLAM [Concomitant]
     Active Substance: ALPRAZOLAM
  4. ASPIRIN [Concomitant]
     Active Substance: ASPIRIN
  5. AZITHROMYCIN [Concomitant]
     Active Substance: AZITHROMYCIN
  6. BENZONATATE [Concomitant]
     Active Substance: BENZONATATE
  7. BUPROPION [Concomitant]
     Active Substance: BUPROPION
  8. CEPHALEXIN [Concomitant]
     Active Substance: CEPHALEXIN
  9. CINNAMON [Concomitant]
     Active Substance: CINNAMON
  10. CITALOPRAM [Concomitant]
     Active Substance: CITALOPRAM HYDROBROMIDE
  11. DIGOXIN [Concomitant]
     Active Substance: DIGOXIN
  12. DOXYCYCLINE [Concomitant]
     Active Substance: DOXYCYCLINE
  13. ESCITALOPRAM [Concomitant]
     Active Substance: ESCITALOPRAM OXALATE
  14. EVISTA [Concomitant]
     Active Substance: RALOXIFENE HYDROCHLORIDE
  15. FUROSEMIDE [Concomitant]
     Active Substance: FUROSEMIDE
  16. GABAPENTIN [Concomitant]
     Active Substance: GABAPENTIN
  17. GARLIC OIL [Concomitant]
     Active Substance: GARLIC OIL
  18. CHONDROITIN SULFATE (BOVINE)\GLUCOSAMINE SULFATE [Concomitant]
     Active Substance: CHONDROITIN SULFATE (BOVINE)\GLUCOSAMINE SULFATE
  19. GRALISE [Concomitant]
     Active Substance: GABAPENTIN
  20. LANSPRAZOLE [Concomitant]
  21. METAMUCIL [Concomitant]
     Active Substance: PLANTAGO SEED
  22. METOPROLOL [Concomitant]
     Active Substance: METOPROLOL
  23. MOBIC [Concomitant]
     Active Substance: MELOXICAM
  24. NITROGLYCERIN [Concomitant]
     Active Substance: NITROGLYCERIN
  25. POTASSIUM CHLORIDE [Concomitant]
     Active Substance: POTASSIUM CHLORIDE
  26. RALOXIFENE [Concomitant]
     Active Substance: RALOXIFENE
  27. SIMVASTATIN [Concomitant]
     Active Substance: SIMVASTATIN
  28. VESICARE [Concomitant]
     Active Substance: SOLIFENACIN SUCCINATE
  29. VITAMIN B COMPLEX [Concomitant]
     Active Substance: CYANOCOBALAMIN\DEXPANTHENOL\NIACINAMIDE\PYRIDOXINE HYDROCHLORIDE\RIBOFLAVIN 5^-PHOSPHATE SODIUM\THIA
  30. VITAMIN C [Concomitant]
     Active Substance: ASCORBIC ACID
  31. ZOLPIDEM [Concomitant]
     Active Substance: ZOLPIDEM TARTRATE

REACTIONS (1)
  - Hospitalisation [None]
